FAERS Safety Report 8305696-X (Version None)
Quarter: 2012Q1

REPORT INFORMATION
  Report Type: 
  Country: None (occurrence: None)
  Receive Date: 20120326
  Receipt Date: 20111208
  Transmission Date: 20120608
  Serious: Yes (Other)
  Sender: FDA-Public Use
  Company Number: PHEH2011US011229

PATIENT
  Age: 79 Year
  Sex: Male
  Weight: 83.9 kg

DRUGS (2)
  1. TASIGNA [Suspect]
     Indication: CHRONIC MYELOID LEUKAEMIA
     Dosage: 300 MG, BID, ORAL
     Route: 048
     Dates: start: 20111111
  2. TASIGNA [Suspect]
     Indication: CHROMOSOME ANALYSIS ABNORMAL
     Dosage: 300 MG, BID, ORAL
     Route: 048
     Dates: start: 20111111

REACTIONS (3)
  - RASH [None]
  - OEDEMA [None]
  - WEIGHT INCREASED [None]
